FAERS Safety Report 4681593-6 (Version None)
Quarter: 2005Q2

REPORT INFORMATION
  Report Type: 
  Country: None (occurrence: None)
  Receive Date: 20050602
  Receipt Date: 20050419
  Transmission Date: 20051028
  Serious: Yes (Other)
  Sender: FDA-Public Use
  Company Number: USA050187637

PATIENT
  Age: 88 Year
  Sex: Female

DRUGS (8)
  1. FORTEO [Suspect]
     Indication: OSTEOPOROSIS
     Dates: start: 20030501, end: 20040101
  2. AVAPRO [Concomitant]
  3. LIPITOR [Concomitant]
  4. ATENOLOL [Concomitant]
  5. TORSEMIDE [Concomitant]
  6. TEMAZEPAM [Concomitant]
  7. OSCAL (CALCIUM CARBONATE) [Concomitant]
  8. LEVOBUNOLOL [Concomitant]

REACTIONS (2)
  - CERVIX CARCINOMA [None]
  - HAEMORRHAGE [None]
